FAERS Safety Report 12675242 (Version 3)
Quarter: 2016Q4

REPORT INFORMATION
  Report Type: Spontaneous
  Country: IT (occurrence: IT)
  Receive Date: 20160823
  Receipt Date: 20161227
  Transmission Date: 20170207
  Serious: Yes (Death)
  Sender: FDA-Public Use
  Company Number: IT-ROCHE-1818003

PATIENT
  Age: 68 Year
  Sex: Male
  Weight: 92 kg

DRUGS (10)
  1. OXALIPLATIN. [Suspect]
     Active Substance: OXALIPLATIN
     Indication: COLORECTAL ADENOCARCINOMA
     Dosage: 5 MG/ML 1 GLASS VIAL, 20 ML
     Route: 065
     Dates: start: 20160722, end: 20160819
  2. CAPECITABINE. [Concomitant]
     Active Substance: CAPECITABINE
     Indication: COLORECTAL ADENOCARCINOMA
     Route: 048
  3. TRIMETON (ITALY) [Concomitant]
     Dosage: ^10 MG / 1 ML SOLUTION FOR INJECTION^ 5 VIALS 1 ML
     Route: 065
  4. COMBISARTAN [Concomitant]
     Active Substance: HYDROCHLOROTHIAZIDE\VALSARTAN
  5. ZOFRAN [Concomitant]
     Active Substance: ONDANSETRON HYDROCHLORIDE
     Dosage: 8 MG / 4 ML SOLUTION FOR INJECTION 1 VIAL, 4 ML
     Route: 065
  6. SOLDESAM [Concomitant]
     Active Substance: DEXAMETHASONE
     Dosage: 4 MG/ML SOLUTION FOR INJECTION 3 VIALS 1 ML
     Route: 065
  7. RANITIDINE. [Concomitant]
     Active Substance: RANITIDINE
     Dosage: 50 MG / 5 ML 10 VIALS
     Route: 065
  8. OMNIC [Concomitant]
     Active Substance: TAMSULOSIN HYDROCHLORIDE
  9. AVASTIN [Suspect]
     Active Substance: BEVACIZUMAB
     Indication: COLORECTAL ADENOCARCINOMA
     Route: 042
     Dates: start: 20160722, end: 20160819
  10. BECOZYM [Concomitant]
     Active Substance: VITAMINS

REACTIONS (1)
  - Cardio-respiratory arrest [Fatal]

NARRATIVE: CASE EVENT DATE: 20160819
